FAERS Safety Report 10630423 (Version 1)
Quarter: 2014Q4

REPORT INFORMATION
  Report Type: Spontaneous
  Country: None (occurrence: None)
  Receive Date: 20141203
  Receipt Date: 20141203
  Transmission Date: 20150529
  Serious: Yes (Other)
  Sender: FDA-Public Use
  Company Number: None

PATIENT
  Age: 14 Year
  Sex: Female
  Weight: 48.99 kg

DRUGS (1)
  1. DEPO-PROVERA [Suspect]
     Active Substance: MEDROXYPROGESTERONE ACETATE
     Indication: CONTRACEPTION
     Dosage: 150 SHOTS
     Dates: start: 20140528, end: 20140813

REACTIONS (4)
  - Loss of consciousness [None]
  - Nonspecific reaction [None]
  - Mitral valve prolapse [None]
  - Antinuclear antibody positive [None]

NARRATIVE: CASE EVENT DATE: 20140528
